FAERS Safety Report 25588676 (Version 1)
Quarter: 2025Q3

REPORT INFORMATION
  Report Type: Spontaneous
  Country: EU (occurrence: EU)
  Receive Date: 20250722
  Receipt Date: 20250722
  Transmission Date: 20251021
  Serious: Yes (Hospitalization)
  Sender: CHEPLAPHARM
  Company Number: EU-ROCHE-2719886

PATIENT
  Age: 73 Year
  Sex: Female
  Weight: 77 kg

DRUGS (14)
  1. CAPECITABINE [Suspect]
     Active Substance: CAPECITABINE
     Indication: Triple negative breast cancer
     Dosage: ON DAYS 1 TO 14, FOLLOWED BY A 7-DAY REST PERIOD IN EACH 3-WEEK TREATMENT CYCLE?ON 20/APR/2020, T...
     Route: 048
     Dates: start: 20191104
  2. CAPECITABINE [Suspect]
     Active Substance: CAPECITABINE
     Indication: Triple negative breast cancer
     Route: 048
  3. PLACEBO [Suspect]
     Active Substance: PLACEBO
     Indication: Triple negative breast cancer
     Dosage: ON 20/JUL/2020, THE PATIENT RECEIVED THE MOST RECENT DOSE OF PLACEBO PRIOR TO ADVERSE EVENT
     Route: 042
     Dates: start: 20191104, end: 20201109
  4. VERAPAMIL [Concomitant]
     Active Substance: VERAPAMIL HYDROCHLORIDE
  5. DERMOVAL (FRANCE) [Concomitant]
     Dates: start: 20191216
  6. PRIMPERAN [Concomitant]
     Active Substance: METOCLOPRAMIDE HYDROCHLORIDE
     Dates: start: 20191125
  7. INNOHEP [Concomitant]
     Active Substance: TINZAPARIN SODIUM
     Dates: start: 20200226
  8. PRISTINAMYCIN [Concomitant]
     Active Substance: PRISTINAMYCIN
     Dates: start: 20200420
  9. INNOVAIR [Concomitant]
     Active Substance: BECLOMETHASONE DIPROPIONATE\FORMOTEROL
     Dates: start: 20200127
  10. CROMOPTIC [Concomitant]
     Active Substance: CROMOLYN SODIUM
     Dates: start: 20201019
  11. FUROSEMIDE [Concomitant]
     Active Substance: FUROSEMIDE
     Dates: start: 20200810
  12. LOCOID [Concomitant]
     Active Substance: HYDROCORTISONE BUTYRATE
     Dates: start: 20200928, end: 20201012
  13. TRACLEER [Concomitant]
     Active Substance: BOSENTAN
     Dates: start: 20200810
  14. ADEMPAS [Concomitant]
     Active Substance: RIOCIGUAT
     Dates: start: 20200810

REACTIONS (1)
  - Pulmonary arterial hypertension [Not Recovered/Not Resolved]

NARRATIVE: CASE EVENT DATE: 20200803
